FAERS Safety Report 8937176 (Version 1)
Quarter: 2012Q4

REPORT INFORMATION
  Report Type: Spontaneous
  Country: DE (occurrence: None)
  Receive Date: 20121121
  Receipt Date: 20121121
  Transmission Date: 20130627
  Serious: Yes (Other)
  Sender: FDA-Public Use
  Company Number: GER/GER/12/0026668

PATIENT

DRUGS (1)
  1. QUETIAPINE [Suspect]
     Indication: DRUG USE FOR UNKNOWN INDICATION
     Route: 048
     Dates: start: 201208

REACTIONS (5)
  - Heart rate irregular [None]
  - Palpitations [None]
  - Syncope [None]
  - Electrocardiogram T wave inversion [None]
  - Arrhythmia [None]
